FAERS Safety Report 8965108 (Version 2)
Quarter: 2013Q1

REPORT INFORMATION
  Report Type: Spontaneous
  Country: IT (occurrence: IT)
  Receive Date: 20121214
  Receipt Date: 20130121
  Transmission Date: 20140127
  Serious: Yes (Hospitalization)
  Sender: FDA-Public Use
  Company Number: PHHY2012IT114963

PATIENT
  Sex: Female

DRUGS (8)
  1. TAREG [Suspect]
     Dosage: 14 DF, UNK
     Route: 048
     Dates: start: 20121130, end: 20121130
  2. TINSET [Suspect]
     Dosage: 30 ML A DAY
     Route: 048
     Dates: start: 20121130, end: 20121130
  3. ORUDIS [Suspect]
     Dosage: 30 DF A DAY
     Route: 048
     Dates: start: 20121130, end: 20121130
  4. IMODIUM [Suspect]
     Dosage: 8 DF A DAY
     Route: 048
     Dates: start: 20121130, end: 20121130
  5. PERIDON [Suspect]
     Dosage: 30 DF DAILY
     Route: 048
     Dates: start: 20121130, end: 20121130
  6. BOSCHOFEN [Suspect]
     Dosage: 6 DF A DAY
     Route: 048
     Dates: start: 20121130, end: 20121130
  7. TRIMETON [Suspect]
     Dosage: 20 DF A DAY
     Route: 048
     Dates: start: 20121130, end: 20121130
  8. BUSCOPAN [Suspect]
     Dosage: 10 DF A DAY
     Route: 048
     Dates: start: 20121130, end: 20121130

REACTIONS (5)
  - Self injurious behaviour [Recovered/Resolved]
  - Intentional overdose [Recovered/Resolved]
  - Vomiting [Recovered/Resolved]
  - Hypotension [Recovered/Resolved]
  - Asthenia [Recovered/Resolved]
